FAERS Safety Report 10023518 (Version 2)
Quarter: 2014Q1

REPORT INFORMATION
  Report Type: Spontaneous
  Country: US (occurrence: None)
  Receive Date: 20131231
  Receipt Date: 20140110
  Transmission Date: 20141002
  Serious: Yes (Hospitalization)
  Sender: FDA-Public Use
  Company Number: 2013SA093616

PATIENT
  Age: 59 Year
  Sex: Female

DRUGS (1)
  1. KYNAMRO [Suspect]
     Indication: TYPE IIA HYPERLIPIDAEMIA
     Dosage: TIME TO ONSET: 19 DAYS
     Dates: start: 20130829, end: 201311

REACTIONS (3)
  - Drug dose omission [None]
  - Blood glucose increased [None]
  - Myalgia [None]
